FAERS Safety Report 22600144 (Version 1)
Quarter: 2023Q2

REPORT INFORMATION
  Report Type: Spontaneous
  Country: JP (occurrence: JP)
  Receive Date: 20230614
  Receipt Date: 20230614
  Transmission Date: 20230722
  Serious: Yes (Other)
  Sender: FDA-Public Use
  Company Number: JP-GSKNCCC-Case-01743114_AE-71527

PATIENT

DRUGS (3)
  1. BENLYSTA [Suspect]
     Active Substance: BELIMUMAB
     Indication: Systemic lupus erythematosus
  2. PREDONINE [Concomitant]
     Active Substance: PREDNISOLONE
     Dosage: 6 MG
  3. TACROLIMUS [Concomitant]
     Active Substance: TACROLIMUS
     Dosage: 2 MG

REACTIONS (2)
  - Systemic lupus erythematosus [Unknown]
  - Circumstance or information capable of leading to medication error [Unknown]
